FAERS Safety Report 6959152-1 (Version None)
Quarter: 2010Q3

REPORT INFORMATION
  Report Type: 
  Country: None (occurrence: None)
  Receive Date: 20100831
  Receipt Date: 20100818
  Transmission Date: 20110219
  Serious: Yes (Hospitalization, Other)
  Sender: FDA-Public Use
  Company Number: PHHY2010FR55134

PATIENT
  Sex: Female

DRUGS (11)
  1. VALSARTAN  AND HYDROCHLOROTHIAZIDE [Suspect]
     Dosage: UNK
     Route: 048
     Dates: start: 20100401, end: 20100807
  2. PREVISCAN [Suspect]
     Dosage: 20 MG
     Dates: start: 20100519, end: 20100807
  3. SEROPLEX [Suspect]
     Dosage: UNK
     Dates: end: 20100807
  4. PARIET [Suspect]
     Dosage: UNK
     Dates: end: 20100807
  5. MOTILIUM [Suspect]
     Dosage: UNK
     Dates: end: 20100807
  6. GAVISCON [Suspect]
     Dosage: UNK
     Dates: end: 20100807
  7. TEMERIT [Concomitant]
     Dosage: 5 MG
     Dates: start: 20100630
  8. DITROPAN [Concomitant]
  9. DEXTROPROPOXYPHENE HCL W/PARACETAMOL [Concomitant]
     Dosage: UNK
     Dates: start: 20100601
  10. TAHOR [Concomitant]
     Dosage: UNK
     Dates: start: 20100705
  11. AMLODIPINE [Concomitant]

REACTIONS (11)
  - ALANINE AMINOTRANSFERASE INCREASED [None]
  - ASPARTATE AMINOTRANSFERASE INCREASED [None]
  - BLOOD ALKALINE PHOSPHATASE INCREASED [None]
  - BLOOD BILIRUBIN INCREASED [None]
  - BLOOD CREATININE INCREASED [None]
  - DRUG RASH WITH EOSINOPHILIA AND SYSTEMIC SYMPTOMS [None]
  - EOSINOPHIL COUNT INCREASED [None]
  - PURPURA [None]
  - RASH [None]
  - RASH ERYTHEMATOUS [None]
  - RENAL FAILURE ACUTE [None]
